FAERS Safety Report 9931774 (Version 1)
Quarter: 2014Q1

REPORT INFORMATION
  Report Type: Spontaneous
  Country: US (occurrence: None)
  Receive Date: 20140227
  Receipt Date: 20140227
  Transmission Date: 20141002
  Serious: Yes (Hospitalization, Disabling)
  Sender: FDA-Public Use
  Company Number: None

PATIENT
  Age: 65 Year
  Sex: Male
  Weight: 149.69 kg

DRUGS (2)
  1. TOBRAMYCIN [Suspect]
     Indication: ARTHRITIS INFECTIVE
     Dosage: SINGLE IMPLANTATIO, IMPLANTED WITH KNEE SPACER
     Dates: start: 20131119, end: 20131119
  2. TOBRAMYCIN [Suspect]
     Indication: DEVICE RELATED INFECTION
     Dosage: SINGLE IMPLANTATIO, IMPLANTED WITH KNEE SPACER
     Dates: start: 20131119, end: 20131119

REACTIONS (5)
  - Renal failure acute [None]
  - Dialysis [None]
  - Hypoacusis [None]
  - Vertigo [None]
  - Tremor [None]
